FAERS Safety Report 10684367 (Version 2)
Quarter: 2015Q1

REPORT INFORMATION
  Report Type: Spontaneous
  Country: US (occurrence: None)
  Receive Date: 20141229
  Receipt Date: 20150105
  Transmission Date: 20150720
  Serious: Yes (Other)
  Sender: FDA-Public Use
  Company Number: 2014-US-016580

PATIENT
  Sex: Male

DRUGS (15)
  1. XYREM [Suspect]
     Active Substance: SODIUM OXYBATE
     Indication: INSOMNIA
     Route: 048
     Dates: start: 201108, end: 2011
  2. LATUDA [Suspect]
     Active Substance: LURASIDONE HYDROCHLORIDE
     Indication: POST-TRAUMATIC STRESS DISORDER
     Dates: start: 2014, end: 20141114
  3. LOSARTAN/HCTZ (HYDROCHLOROTHIAZIDE, LOSARTAN POTASSIUM) [Concomitant]
  4. LATUDA [Suspect]
     Active Substance: LURASIDONE HYDROCHLORIDE
     Indication: DEPRESSION
     Dates: start: 2014, end: 20141114
  5. PRISTIQ (DESVENLAFAXINE SUCCINATE) [Concomitant]
     Active Substance: DESVENLAFAXINE SUCCINATE
  6. MIRAPEX [Concomitant]
     Active Substance: PRAMIPEXOLE DIHYDROCHLORIDE
  7. FAMICICLOVIR [Concomitant]
  8. WELLBUTRIN XL (BUPROPION HYDROCHLORIDE) [Concomitant]
  9. ASPRIN (ACETYLSALICYLIC ACID) [Concomitant]
  10. NAPROXEN. [Concomitant]
     Active Substance: NAPROXEN
  11. LATUDA [Suspect]
     Active Substance: LURASIDONE HYDROCHLORIDE
     Indication: ANXIETY
     Dates: start: 2014, end: 20141114
  12. OMEPRAZOLE (OMEPRAZOLE MAGNESIUM) [Concomitant]
  13. GEODON [Suspect]
     Active Substance: ZIPRASIDONE HYDROCHLORIDE\ZIPRASIDONE MESYLATE
     Indication: PRODUCT USED FOR UNKNOWN INDICATION
     Dates: end: 201411
  14. KLOR-CON (POTASSIUM CHLORIDE) [Concomitant]
  15. LIPITOR [Concomitant]
     Active Substance: ATORVASTATIN CALCIUM

REACTIONS (18)
  - Cartilage injury [None]
  - Balance disorder [None]
  - Extrapyramidal disorder [None]
  - Insomnia [None]
  - Parasomnia [None]
  - Procedural pain [None]
  - Abnormal dreams [None]
  - Post-traumatic stress disorder [None]
  - Condition aggravated [None]
  - Dyskinesia [None]
  - Post procedural complication [None]
  - Dysphemia [None]
  - Gait disturbance [None]
  - Speech disorder [None]
  - Musculoskeletal pain [None]
  - Tremor [None]
  - Fall [None]
  - Depressed level of consciousness [None]

NARRATIVE: CASE EVENT DATE: 2011
